FAERS Safety Report 14099805 (Version 2)
Quarter: 2017Q4

REPORT INFORMATION
  Report Type: Spontaneous
  Country: US (occurrence: US)
  Receive Date: 20171017
  Receipt Date: 20171024
  Transmission Date: 20180321
  Serious: Yes (Other)
  Sender: FDA-Public Use
  Company Number: US-BRISTOL-MYERS SQUIBB COMPANY-BMS-2017-090922

PATIENT
  Age: 53 Year
  Sex: Female
  Weight: 65.8 kg

DRUGS (5)
  1. WARFARIN SODIUM. [Suspect]
     Active Substance: WARFARIN SODIUM
     Indication: PRODUCT USED FOR UNKNOWN INDICATION
     Route: 065
  2. TYVASO [Suspect]
     Active Substance: TREPROSTINIL
     Indication: PRODUCT USED FOR UNKNOWN INDICATION
     Dosage: UNK
     Route: 050
  3. ADEMPAS [Concomitant]
     Active Substance: RIOCIGUAT
     Indication: PRODUCT USED FOR UNKNOWN INDICATION
     Route: 065
  4. TYVASO [Suspect]
     Active Substance: TREPROSTINIL
     Indication: PULMONARY HYPERTENSION
     Dosage: 1 DF, QID
     Route: 050
     Dates: start: 20170321
  5. OPSUMIT [Concomitant]
     Active Substance: MACITENTAN
     Indication: PRODUCT USED FOR UNKNOWN INDICATION
     Route: 065

REACTIONS (10)
  - Cough [Unknown]
  - Internal haemorrhage [Unknown]
  - Epistaxis [Unknown]
  - Hypotension [Unknown]
  - Full blood count decreased [Unknown]
  - Dyspnoea [Unknown]
  - Gastroenteritis viral [Unknown]
  - Insomnia [Unknown]
  - Large intestine polyp [Unknown]
  - Palpitations [Unknown]

NARRATIVE: CASE EVENT DATE: 2017
